FAERS Safety Report 5310012-1 (Version None)
Quarter: 2007Q2

REPORT INFORMATION
  Report Type: 
  Country: None (occurrence: None)
  Receive Date: 20070427
  Receipt Date: 20070419
  Transmission Date: 20071010
  Serious: Yes (Other)
  Sender: FDA-Public Use
  Company Number: US-ROCHE-480010

PATIENT
  Sex: Female

DRUGS (1)
  1. BONIVA [Suspect]
     Indication: DRUG USE FOR UNKNOWN INDICATION
     Dosage: ^BONIVA 150 MONTHLY TABLET^
     Route: 065
     Dates: start: 20070122

REACTIONS (2)
  - GASTROINTESTINAL PAIN [None]
  - HAEMATOCHEZIA [None]
